FAERS Safety Report 17288457 (Version 17)
Quarter: 2021Q1

REPORT INFORMATION
  Report Type: Spontaneous
  Country: JP (occurrence: JP)
  Receive Date: 20200120
  Receipt Date: 20210222
  Transmission Date: 20210419
  Serious: Yes (Death, Life-Threatening, Hospitalization, Other)
  Sender: FDA-Public Use
  Company Number: JP-JNJFOC-20200117301

PATIENT
  Age: 77 Year
  Sex: Male
  Weight: 65.4 kg

DRUGS (15)
  1. ERLEADA [Suspect]
     Active Substance: APALUTAMIDE
     Indication: PROSTATE CANCER
     Route: 048
     Dates: start: 20191205
  2. TAKECAB [Suspect]
     Active Substance: VONOPRAZAN FUMARATE
     Dosage: UNKNOWN
     Route: 048
     Dates: start: 20200115
  3. PREDONINE [Concomitant]
     Active Substance: PREDNISOLONE
     Indication: PROSTATE CANCER
     Route: 065
     Dates: start: 20190905
  4. GONAX [Concomitant]
     Active Substance: DEGARELIX
     Dosage: UNKNOWN
     Route: 065
  5. TRAZENTA [Concomitant]
     Active Substance: LINAGLIPTIN
     Dosage: DOSE UNKNOWN
     Route: 048
  6. AMITIZA [Concomitant]
     Active Substance: LUBIPROSTONE
     Dosage: UNKNOWN
     Route: 065
     Dates: start: 20200203
  7. TAKECAB [Suspect]
     Active Substance: VONOPRAZAN FUMARATE
     Route: 048
     Dates: start: 20190610
  8. ELIQUIS [Concomitant]
     Active Substance: APIXABAN
     Dosage: DOSE UNKNOWN
     Route: 065
     Dates: start: 20190531
  9. MAGNESIUM OXIDE. [Concomitant]
     Active Substance: MAGNESIUM OXIDE
     Dosage: DOSE UNKNOWN
     Route: 065
     Dates: start: 201807
  10. GONAX [Concomitant]
     Active Substance: DEGARELIX
     Dosage: DOSE UNKNOWN
     Route: 065
     Dates: start: 201907, end: 201911
  11. AVAPRO [Concomitant]
     Active Substance: IRBESARTAN
     Dosage: DOSE UNKNOWN
     Route: 048
  12. LOTRIGA [Concomitant]
     Active Substance: OMEGA-3-ACID ETHYL ESTERS
     Dosage: DOSE UNKNOWN
     Route: 048
  13. PREDONINE [Concomitant]
     Active Substance: PREDNISOLONE
     Indication: PROSTATE CANCER
     Dosage: UNKNOWN
     Route: 065
  14. AMITIZA [Concomitant]
     Active Substance: LUBIPROSTONE
     Dosage: DOSE UNKNOWN
     Route: 065
     Dates: start: 201807
  15. FEBUXOSTAT. [Concomitant]
     Active Substance: FEBUXOSTAT
     Dosage: DOSE UNKNOWN
     Route: 048

REACTIONS (7)
  - Toxic epidermal necrolysis [Fatal]
  - Sjogren^s syndrome [Not Recovered/Not Resolved]
  - Rash [Recovered/Resolved]
  - Blood creatine phosphokinase increased [Unknown]
  - Fatigue [Unknown]
  - Erythema [Unknown]
  - Hydronephrosis [Unknown]

NARRATIVE: CASE EVENT DATE: 20191219
